FAERS Safety Report 23691167 (Version 1)
Quarter: 2024Q2

REPORT INFORMATION
  Report Type: Report from Study
  Country: CA (occurrence: CA)
  Receive Date: 20240401
  Receipt Date: 20240401
  Transmission Date: 20240716
  Serious: Yes (Other)
  Sender: FDA-Public Use
  Company Number: CA-IPSEN Group, Research and Development-2024-05247

PATIENT
  Age: 33 Year
  Sex: Female

DRUGS (4)
  1. LANREOTIDE ACETATE [Suspect]
     Active Substance: LANREOTIDE ACETATE
     Indication: Gastroenteropancreatic neuroendocrine tumour disease
     Route: 058
     Dates: start: 20210323
  2. IRON [Concomitant]
     Active Substance: IRON
  3. VITAMINS [Concomitant]
     Active Substance: VITAMINS
  4. CORTEF [Concomitant]
     Active Substance: HYDROCORTISONE

REACTIONS (2)
  - Syncope [Recovered/Resolved]
  - Dizziness [Recovered/Resolved]

NARRATIVE: CASE EVENT DATE: 20240327
